FAERS Safety Report 8122062-0 (Version None)
Quarter: 2012Q1

REPORT INFORMATION
  Report Type: 
  Country: None (occurrence: None)
  Receive Date: 20120208
  Receipt Date: 20120130
  Transmission Date: 20120608
  Serious: Yes (Other)
  Sender: FDA-Public Use
  Company Number: CA-JNJFOC-20120201842

PATIENT
  Sex: Female
  Weight: 106 kg

DRUGS (6)
  1. SIMVASTATIN [Concomitant]
     Route: 065
  2. PRILOSEC [Concomitant]
     Route: 065
  3. METHOTREXATE [Concomitant]
     Route: 065
  4. REMICADE [Suspect]
     Indication: ANKYLOSING SPONDYLITIS
     Route: 042
     Dates: start: 20100115
  5. FOLIC ACID [Concomitant]
     Route: 065
  6. AVALIDE [Concomitant]
     Route: 065

REACTIONS (3)
  - HAEMOPTYSIS [None]
  - COUGH [None]
  - CHEST DISCOMFORT [None]
